FAERS Safety Report 9170141 (Version 1)
Quarter: 2013Q1

REPORT INFORMATION
  Report Type: Spontaneous
  Country: IN (occurrence: None)
  Receive Date: 20130311
  Receipt Date: 20130311
  Transmission Date: 20140127
  Serious: Yes (Other)
  Sender: FDA-Public Use
  Company Number: IN-ALKEM-000016

PATIENT
  Age: 18 Year
  Sex: 0

DRUGS (1)
  1. QUETIAPINE (QUETIAPINE) (QUETIAPINE) [Suspect]
     Indication: SCHIZOPHRENIA, PARANOID TYPE
     Dosage: 200.00-MG-2.00/TIMES PER-1.0DAYS

REACTIONS (1)
  - Oculogyric crisis [None]
